FAERS Safety Report 13678386 (Version 1)
Quarter: 2017Q2

REPORT INFORMATION
  Report Type: Spontaneous
  Country: TR (occurrence: TR)
  Receive Date: 20170622
  Receipt Date: 20170622
  Transmission Date: 20170830
  Serious: Yes (Other)
  Sender: FDA-Public Use
  Company Number: TR-PFIZER INC-2017269705

PATIENT
  Age: 2 Year
  Sex: Female

DRUGS (1)
  1. DOPAMINE HCL [Suspect]
     Active Substance: DOPAMINE HYDROCHLORIDE
     Indication: POST CARDIAC ARREST SYNDROME
     Dosage: 10 UG/KG/MINUTE INFUSION
     Route: 042

REACTIONS (1)
  - Seizure [Unknown]
